FAERS Safety Report 5479219-7 (Version None)
Quarter: 2007Q4

REPORT INFORMATION
  Report Type: 
  Country: None (occurrence: None)
  Receive Date: 20071008
  Receipt Date: 20070925
  Transmission Date: 20080405
  Serious: Yes (Other)
  Sender: FDA-Public Use
  Company Number: US-JNJFOC-20070905591

PATIENT
  Sex: Female
  Weight: 55.34 kg

DRUGS (6)
  1. CONCERTA [Suspect]
     Route: 048
  2. CONCERTA [Suspect]
     Route: 048
  3. CONCERTA [Suspect]
     Indication: ATTENTION DEFICIT/HYPERACTIVITY DISORDER
     Route: 048
  4. THYROID TAB [Concomitant]
     Indication: HYPOTHYROIDISM
  5. VITAMIN B [Concomitant]
  6. HORMONES [Concomitant]

REACTIONS (7)
  - ALANINE AMINOTRANSFERASE INCREASED [None]
  - ASPARTATE AMINOTRANSFERASE INCREASED [None]
  - CHEST PAIN [None]
  - HEART RATE DECREASED [None]
  - HYPERTENSION [None]
  - PALPITATIONS [None]
  - PHARYNGOLARYNGEAL PAIN [None]
